FAERS Safety Report 9552466 (Version 2)
Quarter: 2013Q4

REPORT INFORMATION
  Report Type: Spontaneous
  Country: US (occurrence: US)
  Receive Date: 20130925
  Receipt Date: 20131105
  Transmission Date: 20140711
  Serious: No
  Sender: FDA-Public Use
  Company Number: US-PFIZER INC-2013274147

PATIENT
  Age: 68 Year
  Sex: Male
  Weight: 90.7 kg

DRUGS (6)
  1. ALTACE [Suspect]
     Indication: HYPERTENSION
     Dosage: 10 MG, DAILY
     Route: 048
     Dates: start: 200412
  2. LIPITOR [Concomitant]
     Indication: BLOOD CHOLESTEROL INCREASED
     Dosage: 20 MG, DAILY
     Route: 048
  3. HCTZ [Concomitant]
     Dosage: UNK
  4. NORVASC [Concomitant]
     Dosage: UNK
  5. ATORVASTATIN CALCIUM [Concomitant]
     Dosage: UNK
  6. VIAGRA [Concomitant]
     Dosage: UNK

REACTIONS (1)
  - Granuloma [Not Recovered/Not Resolved]
